FAERS Safety Report 21962253 (Version 2)
Quarter: 2023Q1

REPORT INFORMATION
  Report Type: Report from Study
  Country: US (occurrence: US)
  Receive Date: 20230207
  Receipt Date: 20230207
  Transmission Date: 20230418
  Serious: No
  Sender: FDA-Public Use
  Company Number: US-ORG100014127-2021001536

PATIENT
  Age: 32 Year
  Sex: Female

DRUGS (2)
  1. LYSODREN [Suspect]
     Active Substance: MITOTANE
     Indication: Adrenal gland cancer
     Dosage: 02 TABLETS IN THE MORNING AND AFTERNOON, THEN 03 TABLETS AT NIGHT
     Route: 048
     Dates: start: 20210430
  2. LYSODREN [Suspect]
     Active Substance: MITOTANE
     Indication: Adrenal gland cancer
     Dosage: 02 TABLETS IN THE MORNING AND AFTERNOON, THEN 03 TABLETS AT NIGHT
     Route: 048
     Dates: end: 20220615

REACTIONS (5)
  - Dyspepsia [Recovered/Resolved]
  - Headache [Unknown]
  - Diarrhoea [Unknown]
  - Nausea [Unknown]
  - Vomiting [Recovered/Resolved]

NARRATIVE: CASE EVENT DATE: 20211122
